FAERS Safety Report 7016327-3 (Version None)
Quarter: 2010Q3

REPORT INFORMATION
  Report Type: 
  Country: None (occurrence: None)
  Receive Date: 20100927
  Receipt Date: 20100917
  Transmission Date: 20110219
  Serious: Yes (Other)
  Sender: FDA-Public Use
  Company Number: BR-PFIZER INC-2010084736

PATIENT
  Age: 25 Year
  Sex: Female
  Weight: 65 kg

DRUGS (1)
  1. DEPO-PROVERA [Suspect]
     Indication: CONTRACEPTION
     Dosage: 150 MG, EVERY 3 MONTHS
     Route: 030
     Dates: start: 20100528, end: 20100101

REACTIONS (13)
  - ABDOMINAL DISTENSION [None]
  - AMENORRHOEA [None]
  - ANXIETY [None]
  - DIARRHOEA [None]
  - FATIGUE [None]
  - FEELING OF BODY TEMPERATURE CHANGE [None]
  - HEADACHE [None]
  - HUNGER [None]
  - MALAISE [None]
  - METRORRHAGIA [None]
  - PAIN [None]
  - PELVIC PAIN [None]
  - SOMNOLENCE [None]
